FAERS Safety Report 7907502 (Version 3)
Quarter: 2014Q1

REPORT INFORMATION
  Report Type: Spontaneous
  Country: US (occurrence: None)
  Receive Date: 20110301
  Receipt Date: 20140304
  Transmission Date: 20141002
  Serious: Yes (Other)
  Sender: FDA-Public Use
  Company Number: RB-16017-2010

PATIENT
  Sex: Male

DRUGS (4)
  1. SUBOXONE [Suspect]
     Indication: DRUG DEPENDENCE
     Dosage: (8 MG QD TRANSPLACENTAL)
     Route: 064
     Dates: start: 20100621, end: 20100902
  2. AMITRIPTYLINE [Concomitant]
     Indication: DRUG WITHDRAWAL SYNDROME
     Route: 064
     Dates: start: 20100621, end: 20100902
  3. VISTARIL [Concomitant]
     Indication: PRURITUS
     Dosage: DOSE RANGED FROM 25-50 MG
     Route: 064
     Dates: start: 20100727, end: 20100902
  4. PRENATAL VITAMINS [Concomitant]
     Indication: ROUTINE HEALTH MAINTENANCE
     Dosage: ONE DAILY
     Route: 064
     Dates: start: 20100621, end: 20100902

REACTIONS (2)
  - Foetal exposure during pregnancy [None]
  - Drug withdrawal syndrome [None]
